FAERS Safety Report 18072763 (Version 1)
Quarter: 2020Q3

REPORT INFORMATION
  Report Type: Spontaneous
  Country: US (occurrence: US)
  Receive Date: 20200727
  Receipt Date: 20200727
  Transmission Date: 20201103
  Serious: No
  Sender: FDA-Public Use
  Company Number: US-SA-2020SA192990

PATIENT

DRUGS (1)
  1. TOUJEO [Suspect]
     Active Substance: INSULIN GLARGINE
     Dosage: 110 IU, QD
     Route: 065
     Dates: start: 20200723

REACTIONS (1)
  - Intentional product use issue [Unknown]
